FAERS Safety Report 5221094-X (Version None)
Quarter: 2007Q1

REPORT INFORMATION
  Report Type: 
  Country: None (occurrence: None)
  Receive Date: 20070124
  Receipt Date: 20070108
  Transmission Date: 20070707
  Serious: Yes (Hospitalization)
  Sender: FDA-Public Use
  Company Number: DSA_60709_2006

PATIENT
  Age: 7 Year
  Sex: Female
  Weight: 24.9478 kg

DRUGS (3)
  1. DIASTAT [Suspect]
     Indication: CONVULSION
     Dosage: 15 MG PRN RC
     Dates: start: 20040101
  2. LAMICTAL [Concomitant]
  3. TRILEPTAL [Concomitant]

REACTIONS (3)
  - CONVULSION [None]
  - DEVICE BREAKAGE [None]
  - INCORRECT DOSE ADMINISTERED [None]
